FAERS Safety Report 5219473-X (Version None)
Quarter: 2007Q1

REPORT INFORMATION
  Report Type: 
  Country: None (occurrence: None)
  Receive Date: 20070124
  Receipt Date: 20070124
  Transmission Date: 20070707
  Serious: Yes (Other)
  Sender: FDA-Public Use
  Company Number: None

PATIENT
  Age: 81 Year
  Sex: Male
  Weight: 86.2 kg

DRUGS (8)
  1. NIACIN [Suspect]
  2. OMEPRAZOLE [Concomitant]
  3. ASPIRIN [Concomitant]
  4. ATENOLOL [Concomitant]
  5. FISH OIL [Concomitant]
  6. VARDENAFIL HCL [Concomitant]
  7. MELOXICAM [Concomitant]
  8. MECLIZINE HCL [Concomitant]

REACTIONS (1)
  - MYALGIA [None]
